FAERS Safety Report 4992581-4 (Version None)
Quarter: 2006Q1

REPORT INFORMATION
  Report Type: 
  Country: None (occurrence: None)
  Receive Date: 20060313
  Receipt Date: 20051208
  Transmission Date: 20060701
  Serious: No
  Sender: FDA-Public Use
  Company Number: 2005-BP-13504BP

PATIENT
  Age: 88 Year
  Sex: Female

DRUGS (7)
  1. SPIRIVA [Suspect]
     Indication: LUNG INFECTION
     Dosage: 18 MCG(18 MCG),IH
     Dates: start: 20050623
  2. SPIRIVA [Suspect]
  3. LOTREL [Concomitant]
  4. DIOVAN [Concomitant]
  5. HYDROCHLOROTHIAZIDE [Concomitant]
  6. ACIPHEX [Concomitant]
  7. RHINOCORT [Concomitant]

REACTIONS (2)
  - ANXIETY [None]
  - DYSPNOEA [None]
